FAERS Safety Report 8549547-7 (Version None)
Quarter: 2012Q3

REPORT INFORMATION
  Report Type: 
  Country: None (occurrence: None)
  Receive Date: 20120730
  Receipt Date: 20120725
  Transmission Date: 20120928
  Serious: Yes (Hospitalization)
  Sender: FDA-Public Use
  Company Number: FR-PFIZER INC-2012179485

PATIENT
  Age: 46 Year
  Sex: Male

DRUGS (8)
  1. PROCORALAN [Suspect]
     Dosage: 7.5 MG, 2X/DAY
     Route: 048
     Dates: end: 20120701
  2. BISOPROLOL FUMARATE [Suspect]
     Dosage: 2.5 MG, DAILY
     Route: 048
     Dates: end: 20120701
  3. IMOVANE [Suspect]
     Dosage: UNK
     Route: 048
     Dates: end: 20120701
  4. DOBUTAMINE [Suspect]
     Indication: EJECTION FRACTION DECREASED
     Dosage: UNK
     Route: 042
     Dates: start: 20120606
  5. COROTROPE [Suspect]
     Indication: EJECTION FRACTION DECREASED
     Dosage: UNK
     Route: 042
     Dates: start: 20120606, end: 20120701
  6. ALDACTONE [Suspect]
     Dosage: 50 MG, DAILY
     Route: 048
     Dates: end: 20120701
  7. ACETAMINOPHEN AND TRAMADOL HCL [Suspect]
     Indication: PAIN
     Dosage: UNK
     Route: 048
     Dates: end: 20120701
  8. LASIX [Suspect]
     Dosage: 40 MG, DAILY
     Route: 048
     Dates: end: 20120701

REACTIONS (2)
  - CARDIOGENIC SHOCK [None]
  - EOSINOPHILIC MYOCARDITIS [None]
